FAERS Safety Report 6049116-7 (Version None)
Quarter: 2009Q1

REPORT INFORMATION
  Report Type: 
  Country: None (occurrence: None)
  Receive Date: 20090123
  Receipt Date: 20090114
  Transmission Date: 20090719
  Serious: Yes (Hospitalization, Other)
  Sender: FDA-Public Use
  Company Number: DE-BAYER-00/00710-GBD

PATIENT
  Age: 64 Year
  Sex: Male
  Weight: 85 kg

DRUGS (3)
  1. MAGNEVIST [Suspect]
     Indication: SPINAL MYELOGRAM
     Dosage: UNIT DOSE: 20 ML
     Route: 037
     Dates: start: 20000428, end: 20000428
  2. ISOVIST 240 [Suspect]
     Indication: SPINAL MYELOGRAM
     Dosage: UNIT DOSE: 20 ML
     Route: 037
     Dates: start: 20000428, end: 20000428
  3. ACETYLSALICYLIC ACID SRT [Concomitant]
     Route: 048

REACTIONS (21)
  - ACALCULIA [None]
  - AGGRESSION [None]
  - ANTEROGRADE AMNESIA [None]
  - ATAXIA [None]
  - CONFUSIONAL STATE [None]
  - DELIRIUM [None]
  - DISORIENTATION [None]
  - DISTURBANCE IN ATTENTION [None]
  - DYSARTHRIA [None]
  - HALLUCINATIONS, MIXED [None]
  - NAUSEA [None]
  - NYSTAGMUS [None]
  - PSYCHOTIC DISORDER [None]
  - RESTLESSNESS [None]
  - SOMNOLENCE [None]
  - STUPOR [None]
  - TOXIC ENCEPHALOPATHY [None]
  - UNRESPONSIVE TO STIMULI [None]
  - VISION BLURRED [None]
  - VOMITING [None]
  - WRONG DRUG ADMINISTERED [None]
